FAERS Safety Report 7579997-7 (Version None)
Quarter: 2011Q2

REPORT INFORMATION
  Report Type: 
  Country: None (occurrence: None)
  Receive Date: 20110629
  Receipt Date: 20110622
  Transmission Date: 20111010
  Serious: Yes (Other)
  Sender: FDA-Public Use
  Company Number: US-JNJFOC-20110610998

PATIENT
  Sex: Female
  Weight: 82.56 kg

DRUGS (1)
  1. ELMIRON [Suspect]
     Indication: CYSTITIS INTERSTITIAL
     Route: 048
     Dates: start: 20000101

REACTIONS (2)
  - HIATUS HERNIA [None]
  - CYSTITIS INTERSTITIAL [None]
